FAERS Safety Report 17260787 (Version 1)
Quarter: 2020Q1

REPORT INFORMATION
  Report Type: Spontaneous
  Country: PT (occurrence: PT)
  Receive Date: 20200113
  Receipt Date: 20200113
  Transmission Date: 20200409
  Serious: Yes (Other)
  Sender: FDA-Public Use
  Company Number: PT-B.I. PHARMACEUTICALS,INC./RIDGEFIELD-2020-BI-000959

PATIENT
  Age: 74 Year
  Sex: Male

DRUGS (1)
  1. PRAXBIND [Suspect]
     Active Substance: IDARUCIZUMAB
     Indication: PROCOAGULANT THERAPY
     Route: 065

REACTIONS (4)
  - Haematemesis [Recovering/Resolving]
  - Shock [Recovering/Resolving]
  - Haematochezia [Recovering/Resolving]
  - Small intestinal haemorrhage [Recovering/Resolving]
